FAERS Safety Report 25135742 (Version 3)
Quarter: 2025Q4

REPORT INFORMATION
  Report Type: Spontaneous
  Country: US (occurrence: US)
  Receive Date: 20250328
  Receipt Date: 20251105
  Transmission Date: 20260119
  Serious: Yes (Other)
  Sender: PFIZER
  Company Number: US-PFIZER INC-202500066416

PATIENT
  Age: 66 Year
  Sex: Female

DRUGS (1)
  1. IBRANCE [Suspect]
     Active Substance: PALBOCICLIB
     Dosage: 100 MG TAKE ONE TABLET BY MOUTH DAILY FOR 21 DAYS THEN 7 DAYS OFF (100 MG 3X7 UD TAB 21)
     Route: 048

REACTIONS (4)
  - Femur fracture [Unknown]
  - Fall [Unknown]
  - Neuropathy peripheral [Unknown]
  - Gait disturbance [Unknown]

NARRATIVE: CASE EVENT DATE: 20250101
